FAERS Safety Report 19313413 (Version 1)
Quarter: 2021Q2

REPORT INFORMATION
  Report Type: Spontaneous
  Country: US (occurrence: US)
  Receive Date: 20210527
  Receipt Date: 20210527
  Transmission Date: 20210717
  Serious: No
  Sender: FDA-Public Use
  Company Number: None

PATIENT
  Age: 75 Year
  Sex: Female
  Weight: 64.86 kg

DRUGS (11)
  1. LOSARTAN. [Concomitant]
     Active Substance: LOSARTAN
  2. FISH OIL [Concomitant]
     Active Substance: FISH OIL
  3. LEVOTHYROXINE. [Concomitant]
     Active Substance: LEVOTHYROXINE
  4. IBRANCE [Suspect]
     Active Substance: PALBOCICLIB
     Indication: BREAST CANCER
     Dosage: ?          OTHER FREQUENCY:DAILY X 14 DAYS;?
     Route: 048
     Dates: start: 20190419
  5. TYLENOL [Concomitant]
     Active Substance: ACETAMINOPHEN
  6. XANAX [Concomitant]
     Active Substance: ALPRAZOLAM
  7. ADVIL [Concomitant]
     Active Substance: IBUPROFEN
  8. METOPROLOL. [Concomitant]
     Active Substance: METOPROLOL
  9. LETROZOLE. [Concomitant]
     Active Substance: LETROZOLE
  10. GAS?X [Concomitant]
     Active Substance: DIMETHICONE
  11. SIMVASTATIN. [Concomitant]
     Active Substance: SIMVASTATIN

REACTIONS (3)
  - Abdominal pain upper [None]
  - Palpitations [None]
  - Gastritis [None]

NARRATIVE: CASE EVENT DATE: 20210527
